FAERS Safety Report 5600194-6 (Version None)
Quarter: 2008Q1

REPORT INFORMATION
  Report Type: 
  Country: None (occurrence: None)
  Receive Date: 20080123
  Receipt Date: 20080118
  Transmission Date: 20080703
  Serious: Yes (Death)
  Sender: FDA-Public Use
  Company Number: BR-ASTRAZENECA-2008UW01456

PATIENT
  Age: 93 Year
  Sex: Female
  Weight: 39 kg

DRUGS (3)
  1. SEROQUEL [Suspect]
     Indication: DEMENTIA
     Route: 048
     Dates: start: 20070801
  2. NEULEPTIL [Concomitant]
     Indication: AGGRESSION
     Route: 048
     Dates: start: 20070801
  3. EXELON [Concomitant]
     Indication: DEMENTIA ALZHEIMER'S TYPE
     Route: 048
     Dates: start: 20070801

REACTIONS (8)
  - BLOOD PRESSURE INCREASED [None]
  - CARDIAC DISORDER [None]
  - CARDIOMEGALY [None]
  - COUGH [None]
  - DIARRHOEA [None]
  - FAECAL INCONTINENCE [None]
  - OEDEMA DUE TO CARDIAC DISEASE [None]
  - WEIGHT INCREASED [None]
